FAERS Safety Report 7025301-2 (Version None)
Quarter: 2010Q4

REPORT INFORMATION
  Report Type: 
  Country: None (occurrence: None)
  Receive Date: 20101001
  Receipt Date: 20100922
  Transmission Date: 20110411
  Serious: Yes (Hospitalization)
  Sender: FDA-Public Use
  Company Number: US-US-EMD SERONO, INC.-239263K09USA

PATIENT
  Sex: Female

DRUGS (4)
  1. REBIF [Suspect]
     Indication: MULTIPLE SCLEROSIS
     Route: 058
     Dates: start: 20090710
  2. LISINOPRIL [Concomitant]
     Indication: HYPERTENSION
     Route: 065
     Dates: start: 20080101
  3. BACLOFEN [Concomitant]
     Indication: MUSCLE SPASTICITY
     Route: 065
     Dates: start: 20040101
  4. TIZANIDINE HCL [Concomitant]
     Indication: MUSCLE SPASTICITY
     Route: 065
     Dates: start: 20040101

REACTIONS (1)
  - PNEUMONIA [None]
